FAERS Safety Report 17214058 (Version 3)
Quarter: 2020Q1

REPORT INFORMATION
  Report Type: Spontaneous
  Country: US (occurrence: US)
  Receive Date: 20191230
  Receipt Date: 20200213
  Transmission Date: 20200409
  Serious: Yes (Other)
  Sender: FDA-Public Use
  Company Number: US-PFIZER INC-2019559357

PATIENT
  Age: 78 Year
  Sex: Female
  Weight: 64 kg

DRUGS (14)
  1. IBRANCE [Suspect]
     Active Substance: PALBOCICLIB
     Dosage: 125 MG, CYCLIC (DAYS 1 TO 21)
     Route: 048
  2. COLACE [Concomitant]
     Active Substance: DOCUSATE SODIUM
     Dosage: UNK
  3. AMLODIPINE BESYLATE. [Concomitant]
     Active Substance: AMLODIPINE BESYLATE
     Dosage: UNK
  4. IBRANCE [Suspect]
     Active Substance: PALBOCICLIB
     Indication: BREAST CANCER
     Dosage: 125 MG, CYCLIC (DAILY FOR 21 OUT OF 28 DAYS)
     Route: 048
     Dates: start: 20191211
  5. MORPHINE SULFATE. [Concomitant]
     Active Substance: MORPHINE SULFATE
     Dosage: UNK
  6. MORPHINE [Concomitant]
     Active Substance: MORPHINE
     Dosage: UNK
  7. LETROZOLE. [Concomitant]
     Active Substance: LETROZOLE
     Dosage: UNK
  8. METOPROLOL SUCCINATE. [Concomitant]
     Active Substance: METOPROLOL SUCCINATE
     Dosage: UNK
  9. POLYETHYLENE GLYCOL [Concomitant]
     Active Substance: POLYETHYLENE GLYCOLS
     Dosage: UNK
  10. CALCIUM CARBONATE. [Concomitant]
     Active Substance: CALCIUM CARBONATE
     Dosage: UNK
  11. MIRALAX [Concomitant]
     Active Substance: POLYETHYLENE GLYCOL 3350
     Dosage: UNK
  12. OMEPRAZOLE. [Concomitant]
     Active Substance: OMEPRAZOLE
     Dosage: UNK
  13. VITAMIN D3 [Concomitant]
     Active Substance: CHOLECALCIFEROL
     Dosage: UNK
  14. ACETAMINOPHEN;HYDROCODONE [Concomitant]
     Active Substance: ACETAMINOPHEN\HYDROCODONE
     Dosage: UNK

REACTIONS (7)
  - Spondylitis [Unknown]
  - Chills [Unknown]
  - Hot flush [Unknown]
  - Arteriosclerosis [Unknown]
  - Hyperhidrosis [Unknown]
  - Nephrocalcinosis [Unknown]
  - Condition aggravated [Unknown]

NARRATIVE: CASE EVENT DATE: 2019
